FAERS Safety Report 25582549 (Version 1)
Quarter: 2025Q3

REPORT INFORMATION
  Report Type: Spontaneous
  Country: US (occurrence: US)
  Receive Date: 20250720
  Receipt Date: 20250720
  Transmission Date: 20251020
  Serious: Yes (Other)
  Sender: Teyro Labs
  Company Number: US-TEYRO-2025-TY-000512

PATIENT
  Age: 45 Year
  Sex: Male

DRUGS (3)
  1. GEMCITABINE [Suspect]
     Active Substance: GEMCITABINE
     Indication: Angiosarcoma
     Route: 065
  2. DOCETAXEL [Suspect]
     Active Substance: DOCETAXEL
     Indication: Angiosarcoma
     Route: 065
  3. CISPLATIN [Suspect]
     Active Substance: CISPLATIN
     Indication: Angiosarcoma
     Route: 013

REACTIONS (6)
  - Deafness [Unknown]
  - Pulmonary toxicity [Unknown]
  - Neuropathy peripheral [Unknown]
  - Therapy partial responder [Unknown]
  - Rhinitis [Unknown]
  - Off label use [Unknown]
